FAERS Safety Report 9661586 (Version 2)
Quarter: 2013Q4

REPORT INFORMATION
  Report Type: Spontaneous
  Country: US (occurrence: US)
  Receive Date: 20131031
  Receipt Date: 20131031
  Transmission Date: 20140711
  Serious: No
  Sender: FDA-Public Use
  Company Number: US-PURDUE-USA-2010-0054753

PATIENT
  Age: 56 Year
  Sex: Female

DRUGS (5)
  1. OXYCONTIN (NDA 22-272) [Suspect]
     Indication: SYSTEMIC LUPUS ERYTHEMATOSUS
     Dosage: 80 MG, TID
     Dates: start: 20100108
  2. OXYCONTIN (NDA 22-272) [Suspect]
     Indication: ARTHRITIS
  3. OXYCONTIN (NDA 22-272) [Suspect]
     Indication: ARTHRALGIA
  4. OXYCONTIN (NDA 22-272) [Suspect]
     Indication: ARTHRALGIA
  5. OXYCONTIN (NDA 22-272) [Suspect]
     Indication: PAIN

REACTIONS (4)
  - Medication residue present [Not Recovered/Not Resolved]
  - Throat irritation [Unknown]
  - Inadequate analgesia [Not Recovered/Not Resolved]
  - Constipation [Unknown]
